FAERS Safety Report 20222128 (Version 2)
Quarter: 2022Q2

REPORT INFORMATION
  Report Type: Spontaneous
  Country: CA (occurrence: CA)
  Receive Date: 20211223
  Receipt Date: 20220527
  Transmission Date: 20220720
  Serious: Yes (Other)
  Sender: FDA-Public Use
  Company Number: CA-SA-SAC20211214000982

PATIENT
  Sex: Female

DRUGS (28)
  1. ARAVA [Suspect]
     Active Substance: LEFLUNOMIDE
  2. LEFLUNOMIDE [Suspect]
     Active Substance: LEFLUNOMIDE
     Indication: Product used for unknown indication
  3. CHLORHEXIDINE [Suspect]
     Active Substance: CHLORHEXIDINE
  4. CHLORHEXIDINE GLUCONATE [Suspect]
     Active Substance: CHLORHEXIDINE GLUCONATE
     Route: 002
  5. METHOTREXATE [Suspect]
     Active Substance: METHOTREXATE
  6. SULFAMETHOXAZOLE\TRIMETHOPRIM [Suspect]
     Active Substance: SULFAMETHOXAZOLE\TRIMETHOPRIM
  7. UBIDECARENONE [Suspect]
     Active Substance: UBIDECARENONE
  8. ABATACEPT [Suspect]
     Active Substance: ABATACEPT
  9. ACETAMINOPHEN AND CAFFEINE [Suspect]
     Active Substance: ACETAMINOPHEN\CAFFEINE
  10. ACTEMRA [Suspect]
     Active Substance: TOCILIZUMAB
  11. CIMZIA [Suspect]
     Active Substance: CERTOLIZUMAB PEGOL
     Indication: Rheumatoid arthritis
     Dosage: 400 MG, QOW
     Route: 058
  12. CIMZIA [Suspect]
     Active Substance: CERTOLIZUMAB PEGOL
     Dosage: 200 UNK
     Route: 058
  13. CIMZIA [Suspect]
     Active Substance: CERTOLIZUMAB PEGOL
     Dosage: 400 UNK
     Route: 058
  14. ENBREL [Suspect]
     Active Substance: ETANERCEPT
     Indication: Rheumatoid arthritis
     Route: 058
  15. OXYCODONE TEREPHTHALATE [Suspect]
     Active Substance: OXYCODONE TEREPHTHALATE
  16. SIMPONI [Suspect]
     Active Substance: GOLIMUMAB
     Route: 058
  17. VITAMIN C [Concomitant]
     Active Substance: ASCORBIC ACID
  18. VITAMIN D NOS [Concomitant]
     Active Substance: VITAMIN D NOS
  19. CHOLECALCIFEROL [Concomitant]
     Active Substance: CHOLECALCIFEROL
  20. DESOGESTREL\ETHINYL ESTRADIOL [Concomitant]
     Active Substance: DESOGESTREL\ETHINYL ESTRADIOL
  21. FISH OIL [Concomitant]
     Active Substance: FISH OIL
  22. HYDROXYCHLOROQUINE [Concomitant]
     Active Substance: HYDROXYCHLOROQUINE
  23. IBUPROFEN [Concomitant]
     Active Substance: IBUPROFEN
  24. PANTOPRAZOLE [Concomitant]
     Active Substance: PANTOPRAZOLE
  25. PREDNISONE [Concomitant]
     Active Substance: PREDNISONE
  26. ZOPICLONE [Concomitant]
     Active Substance: ZOPICLONE
  27. ALFACALCIDOL [Concomitant]
     Active Substance: ALFACALCIDOL
  28. PANTOPRAZOLE SODIUM [Concomitant]
     Active Substance: PANTOPRAZOLE SODIUM

REACTIONS (21)
  - Respiratory disorder [Unknown]
  - Back pain [Unknown]
  - Ear pain [Unknown]
  - Muscle spasticity [Unknown]
  - Pain [Unknown]
  - Joint swelling [Unknown]
  - Peripheral swelling [Unknown]
  - Sinusitis [Unknown]
  - Abdominal pain upper [Unknown]
  - Asthenia [Unknown]
  - Body temperature increased [Unknown]
  - Diarrhoea [Unknown]
  - Headache [Unknown]
  - Insomnia [Unknown]
  - Lower respiratory tract infection [Unknown]
  - Night sweats [Unknown]
  - Pruritus [Unknown]
  - Rash [Unknown]
  - Urticaria [Unknown]
  - Vomiting [Unknown]
  - Intentional product use issue [Unknown]
